FAERS Safety Report 5527316-X (Version None)
Quarter: 2007Q4

REPORT INFORMATION
  Report Type: 
  Country: None (occurrence: None)
  Receive Date: 20071128
  Receipt Date: 20071116
  Transmission Date: 20080405
  Serious: Yes (Hospitalization)
  Sender: FDA-Public Use
  Company Number: B0494356A

PATIENT
  Age: 55 Year
  Sex: Female

DRUGS (6)
  1. DEROXAT [Suspect]
     Indication: DEPRESSION
     Dosage: 1UNIT PER DAY
     Route: 048
  2. MABTHERA [Suspect]
     Dosage: 500MG WEEKLY
     Route: 042
     Dates: start: 20050525, end: 20050620
  3. CORTANCYL [Suspect]
     Indication: RHEUMATOID ARTHRITIS
     Dosage: 5MG PER DAY
     Route: 048
  4. PLAQUENIL [Suspect]
     Indication: RHEUMATOID ARTHRITIS
     Dosage: 2UNIT PER DAY
     Route: 048
  5. PREVISCAN [Suspect]
     Indication: AORTIC VALVE DISEASE
     Route: 048
  6. MOPRAL [Suspect]
     Indication: GASTRITIS PROPHYLAXIS
     Route: 048

REACTIONS (3)
  - CHEST X-RAY ABNORMAL [None]
  - CRYPTOGENIC ORGANISING PNEUMONIA [None]
  - LUNG DISORDER [None]
